FAERS Safety Report 7269881-0 (Version None)
Quarter: 2011Q1

REPORT INFORMATION
  Report Type: 
  Country: None (occurrence: None)
  Receive Date: 20110125
  Receipt Date: 20110125
  Transmission Date: 20110831
  Serious: Yes (Hospitalization)
  Sender: FDA-Public Use
  Company Number: None

PATIENT
  Sex: Male
  Weight: 74 kg

DRUGS (2)
  1. VINORELBINE [Suspect]
     Dosage: 30 MG/M2/DAY IVP OVER 10 MIN ON DAYS 1 AND 8
     Route: 042
     Dates: start: 20110114, end: 20110118
  2. CISPLATIN [Suspect]
     Dosage: 75 MG/M2 IV OVER 60 MIN ON DAY 1
     Dates: start: 20110114, end: 20110118

REACTIONS (9)
  - FEBRILE NEUTROPENIA [None]
  - CHRONIC OBSTRUCTIVE PULMONARY DISEASE [None]
  - CONDITION AGGRAVATED [None]
  - NEUTROPHIL COUNT DECREASED [None]
  - HYPOXIA [None]
  - BRONCHITIS [None]
  - WHITE BLOOD CELL COUNT DECREASED [None]
  - TACHYCARDIA [None]
  - PO2 DECREASED [None]
